FAERS Safety Report 7864602-2 (Version None)
Quarter: 2011Q4

REPORT INFORMATION
  Report Type: 
  Country: None (occurrence: None)
  Receive Date: 20111028
  Receipt Date: 20111019
  Transmission Date: 20120403
  Serious: Yes (Death, Other)
  Sender: FDA-Public Use
  Company Number: US-CELGENEUS-163-21880-11062209

PATIENT
  Sex: Female

DRUGS (8)
  1. REVLIMID [Suspect]
     Indication: MULTIPLE MYELOMA
     Dosage: 15 MILLIGRAM
     Route: 048
     Dates: start: 20110320, end: 20110601
  2. ECOTRIN LOW STRENGTH [Concomitant]
     Dosage: 81 MILLIGRAM
     Route: 048
  3. VITAMIN B-12 [Concomitant]
     Dosage: 1000 MICROGRAM
     Route: 048
  4. DECADRON [Concomitant]
     Dosage: 40 MILLIGRAM
     Route: 048
  5. PRILOSEC [Concomitant]
     Dosage: 20 MILLIGRAM
     Route: 048
  6. ZOMETA [Concomitant]
     Route: 065
  7. MULTI-VITAMINS [Concomitant]
     Dosage: 1 CAPSULE
     Route: 048
  8. CALCIUM 600 + D [Concomitant]
     Dosage: 1000-400MG
     Route: 048

REACTIONS (4)
  - DEATH [None]
  - OEDEMA PERIPHERAL [None]
  - STOMATITIS [None]
  - PANCYTOPENIA [None]
